FAERS Safety Report 11660075 (Version 3)
Quarter: 2018Q4

REPORT INFORMATION
  Report Type: Spontaneous
  Country: JP (occurrence: JP)
  Receive Date: 20151026
  Receipt Date: 20181227
  Transmission Date: 20190204
  Serious: Yes (Hospitalization, Other)
  Sender: FDA-Public Use
  Company Number: JP-TEVA-604273ISR

PATIENT
  Age: 11 Year
  Sex: Male

DRUGS (8)
  1. METHOTREXATE SODIUM. [Concomitant]
     Active Substance: METHOTREXATE SODIUM
     Indication: MEDULLOBLASTOMA
     Dosage: SIX INJECTIONS; CUMULATIVE DOSE FOR TREATMENT OF MEDULLOBLASTOMA: 72MG/BODY
     Route: 037
  2. THIOTEPA. [Suspect]
     Active Substance: THIOTEPA
     Indication: MEDULLOBLASTOMA
     Dosage: 1 CYCLE WITH MELPHALAN; CUMULATIVE DOSE FOR TREATMENT OF MEDULLOBLASTOMA: 800MG/M2
     Route: 065
  3. MELPHALAN. [Suspect]
     Active Substance: MELPHALAN
     Indication: MEDULLOBLASTOMA
     Dosage: 1 CYCLE WITH THIOTEPA; CUMULATIVE DOSE FOR TREATMENT OF MEDULLOBLASTOMA: 280MG/M2
     Route: 065
  4. DEXAMETHASONE. [Concomitant]
     Active Substance: DEXAMETHASONE
     Indication: MEDULLOBLASTOMA
     Dosage: SIX INJECTIONS
     Route: 037
  5. ETOPOSIDE. [Suspect]
     Active Substance: ETOPOSIDE
     Indication: MEDULLOBLASTOMA
     Dosage: CYCLOPHOSPHAMIDE,ETOPOSIDE,VINCRISTINE AND CISPLATIN FOR 4 CYCLES;CUMULATIVE DOSE WAS 14000MG/M 2
     Route: 065
  6. CISPLATIN. [Suspect]
     Active Substance: CISPLATIN
     Indication: MEDULLOBLASTOMA
     Dosage: CYCLOPHOSPHAMIDE, ETOPOSIDE, VINCRISTINE AND CISPLATIN FOR 4 CYCLES
     Route: 065
  7. CYCLOPHOSPHAMIDE. [Suspect]
     Active Substance: CYCLOPHOSPHAMIDE
     Indication: MEDULLOBLASTOMA
     Dosage: CYCLOPHOSPHAMIDE,ETOPOSIDE,VINCRISTINE AND CISPLATIN FOR 4 CYCLES;THE CUMULATIVE DOSE WAS 12000MG/M2
     Route: 065
  8. VINCRISTINE [Suspect]
     Active Substance: VINCRISTINE
     Indication: MEDULLOBLASTOMA
     Dosage: CYCLOPHOSPHAMIDE,ETOPOSIDE,VINCRISTINE AND CISPLATIN FOR 4 CYCLES;
     Route: 065

REACTIONS (2)
  - Osteosarcoma [Recovered/Resolved]
  - Second primary malignancy [Recovered/Resolved]
